FAERS Safety Report 8777290 (Version 2)
Quarter: 2012Q4

REPORT INFORMATION
  Report Type: 
  Country: FR (occurrence: FR)
  Receive Date: 20120911
  Receipt Date: 20120926
  Transmission Date: 20130627
  Serious: Yes (Life-Threatening, Hospitalization)
  Sender: FDA-Public Use
  Company Number: FR-BAXTER-2012BAX015937

PATIENT
  Age: 23 Year
  Sex: Male

DRUGS (8)
  1. ENDOXAN 2000 MG, LYOPHILISAT POUR SOLUTION INJECTABLE [Suspect]
     Indication: BONE MARROW CONDITIONING REGIMEN
     Route: 042
     Dates: start: 20120604, end: 20120605
  2. FLUDARABINE PHOSPHATE [Suspect]
     Indication: BONE MARROW CONDITIONING REGIMEN
     Route: 042
     Dates: start: 20120602, end: 20120606
  3. CELLCEPT [Suspect]
     Indication: BONE MARROW TRANSPLANT
     Route: 048
     Dates: start: 20120608, end: 20120628
  4. VFEND [Suspect]
     Indication: ASPERGILLOSIS
     Route: 048
     Dates: start: 20120530, end: 20120712
  5. AMBISOME [Concomitant]
     Indication: MUCORMYCOSIS
     Route: 065
     Dates: start: 20120618
  6. AMBISOME [Concomitant]
     Indication: ASPERGILLOSIS
     Route: 065
     Dates: start: 20120712
  7. BACTRIM [Concomitant]
     Indication: DRUG USE FOR UNKNOWN INDICATION
     Route: 065
     Dates: start: 20120717
  8. ZOVIRAX [Concomitant]
     Indication: HERPES VIRAL INFECTION NOS
     Route: 042
     Dates: start: 20120531

REACTIONS (1)
  - Acute respiratory distress syndrome [Recovered/Resolved]
